FAERS Safety Report 5087507-1 (Version None)
Quarter: 2006Q3

REPORT INFORMATION
  Report Type: 
  Country: None (occurrence: None)
  Receive Date: 20060727
  Receipt Date: 20060614
  Transmission Date: 20061208
  Serious: Yes (Other)
  Sender: FDA-Public Use
  Company Number: 2006059221

PATIENT
  Age: 75 Year
  Sex: Female
  Weight: 90.7194 kg

DRUGS (9)
  1. LYRICA [Suspect]
     Indication: NEUROPATHY PERIPHERAL
     Dosage: 150 MG (50 MG, 3 IN 1 D), ORAL
     Route: 048
     Dates: start: 20060418, end: 20060420
  2. VERELAN PM [Concomitant]
  3. SPIRONOLACTONE [Concomitant]
  4. ALL OTHER THERAPEUTIC PRODUCTS [Concomitant]
  5. EVISTA [Concomitant]
  6. PAXIL CR [Concomitant]
  7. MOBIC [Concomitant]
  8. ACTOS [Concomitant]
  9. ASPIRIN [Concomitant]

REACTIONS (1)
  - FEELING ABNORMAL [None]
